FAERS Safety Report 21041015 (Version 4)
Quarter: 2023Q4

REPORT INFORMATION
  Report Type: Report from Study
  Country: KR (occurrence: KR)
  Receive Date: 20220704
  Receipt Date: 20231006
  Transmission Date: 20240109
  Serious: Yes (Hospitalization)
  Sender: FDA-Public Use
  Company Number: KR-ABBVIE-22K-090-4451065-00

PATIENT
  Age: 69 Year
  Sex: Male
  Weight: 64 kg

DRUGS (6)
  1. GLECAPREVIR\PIBRENTASVIR [Suspect]
     Active Substance: GLECAPREVIR\PIBRENTASVIR
     Indication: Chronic hepatitis C
     Dosage: 3 TABLET
     Route: 048
     Dates: start: 20220420, end: 20220613
  2. GLECAPREVIR\PIBRENTASVIR [Suspect]
     Active Substance: GLECAPREVIR\PIBRENTASVIR
     Indication: Chronic hepatitis C
     Dosage: 3 TABLET
     Route: 048
     Dates: start: 20220708, end: 20220719
  3. 30 mg Kanarb [Concomitant]
     Indication: Hypertension
     Dosage: 1 TABLET
     Route: 048
  4. 30 mg Lixiana [Concomitant]
     Indication: Atrial fibrillation
     Dosage: 1 TABLET
     Route: 048
  5. 325 mg Rytmonorm sr [Concomitant]
     Indication: Atrial fibrillation
     Dosage: 1 CAPSULE
     Route: 048
  6. TUVERO [Concomitant]
     Indication: Hypertension
     Dosage: 30/10 MG TABLET

REACTIONS (1)
  - Cholangitis [Recovered/Resolved]

NARRATIVE: CASE EVENT DATE: 20220620
